FAERS Safety Report 12340527 (Version 1)
Quarter: 2016Q2

REPORT INFORMATION
  Report Type: Spontaneous
  Country: US (occurrence: None)
  Receive Date: 20160505
  Receipt Date: 20160505
  Transmission Date: 20160815
  Serious: No
  Sender: FDA-Public Use
  Company Number: None

PATIENT
  Sex: Male

DRUGS (3)
  1. LOSARTAN. [Suspect]
     Active Substance: LOSARTAN
  2. SPIRONOLACTONE. [Suspect]
     Active Substance: SPIRONOLACTONE
  3. METOPROLOL. [Suspect]
     Active Substance: METOPROLOL

REACTIONS (5)
  - Cardiac disorder [None]
  - Nasopharyngitis [None]
  - Decreased appetite [None]
  - Tooth infection [None]
  - Weight decreased [None]
